FAERS Safety Report 5787731-6 (Version None)
Quarter: 2008Q2

REPORT INFORMATION
  Report Type: 
  Country: None (occurrence: None)
  Receive Date: 20080625
  Receipt Date: 20080616
  Transmission Date: 20081010
  Serious: Yes (Hospitalization, Disabling)
  Sender: FDA-Public Use
  Company Number: JP-ASTRAZENECA-2008AP04778

PATIENT
  Age: 17584 Day
  Sex: Female
  Weight: 50 kg

DRUGS (7)
  1. ZOLADEX BC [Suspect]
     Indication: BREAST CANCER
     Route: 058
     Dates: start: 20060802, end: 20070806
  2. NOLVADEX [Suspect]
     Indication: BREAST CANCER
     Route: 048
     Dates: start: 20060802
  3. VOLTAREN [Concomitant]
     Indication: OSTEOARTHRITIS
     Route: 048
     Dates: end: 20070104
  4. VOLTAREN [Concomitant]
     Route: 048
     Dates: start: 20070105
  5. RINLAXER [Concomitant]
     Indication: OSTEOARTHRITIS
     Route: 048
  6. RINLAXER [Concomitant]
     Route: 048
     Dates: start: 20071126
  7. SOLON [Concomitant]
     Indication: GASTRITIS PROPHYLAXIS
     Route: 048
     Dates: start: 20071126

REACTIONS (1)
  - OSTEOARTHRITIS [None]
